FAERS Safety Report 4289879-4 (Version None)
Quarter: 2004Q1

REPORT INFORMATION
  Report Type: 
  Country: None (occurrence: None)
  Receive Date: 20040209
  Receipt Date: 20030917
  Transmission Date: 20041129
  Serious: Yes (Hospitalization)
  Sender: FDA-Public Use
  Company Number: US-BRISTOL-MYERS SQUIBB COMPANY-12384400

PATIENT
  Age: 75 Year
  Sex: Male
  Weight: 71 kg

DRUGS (23)
  1. CISPLATIN [Suspect]
     Indication: LUNG NEOPLASM MALIGNANT
     Route: 042
     Dates: start: 20020807, end: 20021203
  2. ISIS 3521 [Suspect]
     Indication: LUNG NEOPLASM MALIGNANT
     Dosage: CONTINUOUS 14-DAY INFUSION
     Route: 042
     Dates: start: 20020807, end: 20021210
  3. GEMZAR [Suspect]
     Indication: LUNG NEOPLASM MALIGNANT
     Route: 042
     Dates: start: 20020807, end: 20021203
  4. OXYCONTIN [Concomitant]
     Indication: PAIN
     Route: 048
     Dates: start: 20020627
  5. NOVOLIN N [Concomitant]
     Indication: BLOOD GLUCOSE INCREASED
     Dosage: IN MORNING
     Dates: start: 19980101
  6. PREVACID [Concomitant]
     Dates: start: 19960101
  7. VALSARTAN [Concomitant]
     Indication: HYPERTENSION
     Dates: start: 20010101
  8. GUAIFENESIN [Concomitant]
     Dates: start: 19960101
  9. LATANOPROST [Concomitant]
     Indication: GLAUCOMA
     Dates: start: 19990101
  10. ATROVENT [Concomitant]
     Indication: CHRONIC OBSTRUCTIVE AIRWAYS DISEASE
     Dates: start: 20020101
  11. COMPAZINE [Concomitant]
     Indication: NAUSEA
     Dates: start: 20020101
  12. ZOFRAN [Concomitant]
     Indication: NAUSEA
     Dates: start: 20020812
  13. PHENERGAN [Concomitant]
     Indication: NAUSEA
     Dates: start: 20020620
  14. MULTI-VITAMIN [Concomitant]
     Indication: PROPHYLAXIS
     Dates: start: 19970101
  15. SENOKOT [Concomitant]
     Indication: CONSTIPATION
     Dates: start: 20000101
  16. PERCOCET [Concomitant]
     Indication: PAIN
     Dates: start: 20020620
  17. ZOMETA [Concomitant]
     Indication: BONE NEOPLASM MALIGNANT
     Dates: start: 20020725
  18. SEREVENT [Concomitant]
     Indication: CHRONIC OBSTRUCTIVE AIRWAYS DISEASE
     Route: 055
     Dates: start: 20020812
  19. GLIPIZIDE [Concomitant]
     Indication: DIABETES MELLITUS
     Dates: start: 20020812
  20. PRAZOSIN HCL [Concomitant]
     Indication: BENIGN PROSTATIC HYPERPLASIA
     Dates: start: 19960101
  21. LACTULOSE [Concomitant]
     Indication: CONSTIPATION
     Dates: start: 20020812
  22. ALBUTEROL [Concomitant]
     Indication: CHRONIC OBSTRUCTIVE AIRWAYS DISEASE
     Dates: start: 20020101
  23. COUMADIN [Concomitant]
     Indication: DEEP VEIN THROMBOSIS
     Dates: start: 20020904

REACTIONS (19)
  - ABDOMINAL PAIN [None]
  - ANOREXIA [None]
  - BACTERIAL INFECTION [None]
  - BLOOD PRESSURE DECREASED [None]
  - BRONCHITIS [None]
  - CHEST PAIN [None]
  - COUGH [None]
  - DEEP VEIN THROMBOSIS [None]
  - DEHYDRATION [None]
  - DYSPNOEA [None]
  - ESCHERICHIA INFECTION [None]
  - HAEMOGLOBIN DECREASED [None]
  - HAEMOPTYSIS [None]
  - HYPOKALAEMIA [None]
  - HYPOPHOSPHATAEMIA [None]
  - NAUSEA [None]
  - PLATELET COUNT DECREASED [None]
  - PNEUMONIA STREPTOCOCCAL [None]
  - SPUTUM ABNORMAL [None]
